FAERS Safety Report 18610604 (Version 3)
Quarter: 2021Q1

REPORT INFORMATION
  Report Type: Report from Study
  Country: CA (occurrence: CA)
  Receive Date: 20201214
  Receipt Date: 20210315
  Transmission Date: 20210419
  Serious: Yes (Hospitalization, Other)
  Sender: FDA-Public Use
  Company Number: CA-BRISTOL-MYERS SQUIBB COMPANY-BMS-2020-098502

PATIENT
  Sex: Female

DRUGS (1)
  1. ABATACEPT [Suspect]
     Active Substance: ABATACEPT
     Indication: RHEUMATOID ARTHRITIS
     Dosage: 750 MILLIGRAM, QMO
     Route: 042
     Dates: start: 20170120, end: 20201014

REACTIONS (5)
  - Infection [Not Recovered/Not Resolved]
  - Procedural pain [Unknown]
  - Diverticular perforation [Unknown]
  - Female genital tract fistula [Unknown]
  - Gastrointestinal infection [Unknown]
